FAERS Safety Report 21307310 (Version 2)
Quarter: 2022Q4

REPORT INFORMATION
  Report Type: Spontaneous
  Country: US (occurrence: US)
  Receive Date: 20220908
  Receipt Date: 20221109
  Transmission Date: 20230113
  Serious: No
  Sender: FDA-Public Use
  Company Number: US-BAYER-2022A114812

PATIENT
  Age: 57 Year
  Sex: Female

DRUGS (2)
  1. MIRALAX [Suspect]
     Active Substance: POLYETHYLENE GLYCOL 3350
     Indication: Hysterectomy
     Dosage: UNK
     Dates: start: 20220711, end: 20220714
  2. MIRALAX [Suspect]
     Active Substance: POLYETHYLENE GLYCOL 3350
     Indication: Hysterectomy
     Dosage: UNK
     Dates: start: 20220721, end: 20220723

REACTIONS (7)
  - Flatulence [None]
  - Defaecation urgency [None]
  - Nausea [Recovered/Resolved]
  - Vomiting [Recovered/Resolved]
  - Diarrhoea [None]
  - Abdominal pain [None]
  - Off label use [None]

NARRATIVE: CASE EVENT DATE: 20220711
